FAERS Safety Report 19061209 (Version 3)
Quarter: 2021Q2

REPORT INFORMATION
  Report Type: Spontaneous
  Country: AT (occurrence: AT)
  Receive Date: 20210326
  Receipt Date: 20210415
  Transmission Date: 20210717
  Serious: No
  Sender: FDA-Public Use
  Company Number: AT-HRAPH01-2021000097

PATIENT
  Sex: Female

DRUGS (2)
  1. ELLAONE [Suspect]
     Active Substance: ULIPRISTAL ACETATE
     Dosage: FIRST ELLAONE INTAKE: 2 TO 3 WEEKS AGO, I.E. IN FEB 2021
     Route: 048
     Dates: start: 202102, end: 202102
  2. ELLAONE [Suspect]
     Active Substance: ULIPRISTAL ACETATE
     Dosage: SECOND ELLAONE INTAKE ON 10 MARCH 2021
     Route: 048
     Dates: start: 20210310, end: 20210310

REACTIONS (3)
  - Exposure during pregnancy [Not Recovered/Not Resolved]
  - Unintended pregnancy [Not Recovered/Not Resolved]
  - Inappropriate schedule of product administration [Recovered/Resolved]

NARRATIVE: CASE EVENT DATE: 2021
